FAERS Safety Report 14912127 (Version 1)
Quarter: 2018Q2

REPORT INFORMATION
  Report Type: Spontaneous
  Country: US (occurrence: US)
  Receive Date: 20180518
  Receipt Date: 20180518
  Transmission Date: 20180711
  Serious: No
  Sender: FDA-Public Use
  Company Number: US-PFIZER INC-2018201148

PATIENT
  Sex: Female

DRUGS (2)
  1. GABAPENTIN. [Suspect]
     Active Substance: GABAPENTIN
     Indication: PAIN
     Dosage: 1200 MG, 3X/DAY
     Route: 048
  2. GEMFIBROZIL. [Suspect]
     Active Substance: GEMFIBROZIL
     Dosage: UNK

REACTIONS (8)
  - Asthenia [Unknown]
  - Product name confusion [Unknown]
  - Wrong drug administered [Unknown]
  - Prescribed overdose [Unknown]
  - Product label on wrong product [Unknown]
  - Malaise [Unknown]
  - Movement disorder [Unknown]
  - Nausea [Unknown]
